FAERS Safety Report 15821189 (Version 1)
Quarter: 2018Q4

REPORT INFORMATION
  Report Type: Spontaneous
  Country: US (occurrence: US)
  Receive Date: 20181217
  Receipt Date: 20181217
  Transmission Date: 20190205
  Serious: No
  Sender: FDA-Public Use
  Company Number: None

PATIENT
  Age: 30 Year
  Sex: Male

DRUGS (1)
  1. STELARA [Suspect]
     Active Substance: USTEKINUMAB
     Indication: CROHN^S DISEASE
     Dosage: OTHER?
     Route: 060
     Dates: start: 201712

REACTIONS (4)
  - Abscess [None]
  - Postoperative wound complication [None]
  - Crohn^s disease [None]
  - Impaired healing [None]

NARRATIVE: CASE EVENT DATE: 20181214
